FAERS Safety Report 14190712 (Version 2)
Quarter: 2017Q4

REPORT INFORMATION
  Report Type: Spontaneous
  Country: IN (occurrence: IN)
  Receive Date: 20171115
  Receipt Date: 20171127
  Transmission Date: 20180321
  Serious: Yes (Life-Threatening, Other)
  Sender: FDA-Public Use
  Company Number: IN-DRREDDYS-USA/IND/17/0094642

PATIENT
  Age: 5 Year
  Sex: Female

DRUGS (3)
  1. VINCRISTINE [Suspect]
     Active Substance: VINCRISTINE
     Indication: HEPATOBLASTOMA
     Route: 065
  2. IRINOTECAN [Suspect]
     Active Substance: IRINOTECAN
     Indication: HEPATOBLASTOMA
     Route: 065
  3. CISPLATIN. [Suspect]
     Active Substance: CISPLATIN
     Indication: HEPATOBLASTOMA
     Route: 065

REACTIONS (4)
  - Diaphragm neoplasm [Unknown]
  - Drug ineffective [Unknown]
  - Pericardial neoplasm [Unknown]
  - Adverse drug reaction [Unknown]
